FAERS Safety Report 17951663 (Version 1)
Quarter: 2020Q2

REPORT INFORMATION
  Report Type: Spontaneous
  Country: US (occurrence: US)
  Receive Date: 20200626
  Receipt Date: 20200626
  Transmission Date: 20200714
  Serious: Yes (Other)
  Sender: FDA-Public Use
  Company Number: US-ROCHE-2630981

PATIENT
  Age: 61 Year
  Sex: Female
  Weight: 64.5 kg

DRUGS (2)
  1. XELODA [Suspect]
     Active Substance: CAPECITABINE
     Indication: BREAST CANCER
     Dosage: NO
     Route: 048
     Dates: start: 201911, end: 202005
  2. NAVELBINE [Concomitant]
     Active Substance: VINORELBINE TARTRATE
     Route: 065
     Dates: start: 20200623

REACTIONS (4)
  - Haemothorax [Not Recovered/Not Resolved]
  - Metastases to pleura [Not Recovered/Not Resolved]
  - Pleural effusion [Unknown]
  - Oxygen saturation decreased [Unknown]

NARRATIVE: CASE EVENT DATE: 20200518
